FAERS Safety Report 5515546-2 (Version None)
Quarter: 2007Q4

REPORT INFORMATION
  Report Type: 
  Country: None (occurrence: None)
  Receive Date: 20071113
  Receipt Date: 20070327
  Transmission Date: 20080405
  Serious: No
  Sender: FDA-Public Use
  Company Number: A0644831A

PATIENT
  Age: 58 Year
  Sex: Female

DRUGS (4)
  1. COREG [Suspect]
     Dosage: 3.125MG PER DAY
     Route: 048
     Dates: start: 20060201
  2. DIOVAN [Concomitant]
  3. POTASSIUM CHLORIDE [Concomitant]
  4. LASIX [Concomitant]

REACTIONS (3)
  - DIZZINESS [None]
  - HEADACHE [None]
  - VISION BLURRED [None]
